FAERS Safety Report 22056340 (Version 2)
Quarter: 2024Q2

REPORT INFORMATION
  Report Type: Spontaneous
  Country: CH (occurrence: CH)
  Receive Date: 20230302
  Receipt Date: 20240611
  Transmission Date: 20240716
  Serious: Yes (Death, Other)
  Sender: FDA-Public Use
  Company Number: CH-ABBVIE-4313828

PATIENT
  Age: 62 Year
  Sex: Female

DRUGS (6)
  1. SEVOFLURANE [Suspect]
     Active Substance: SEVOFLURANE
     Indication: Product used for unknown indication
     Route: 055
     Dates: start: 20210729, end: 20220729
  2. DAFALGAN [Concomitant]
     Active Substance: ACETAMINOPHEN
     Indication: Product used for unknown indication
     Route: 048
     Dates: end: 20220729
  3. TOPAMAX [Concomitant]
     Active Substance: TOPIRAMATE
     Indication: Product used for unknown indication
     Route: 048
     Dates: end: 20220729
  4. PANTOZOL [Concomitant]
     Active Substance: PANTOPRAZOLE SODIUM
     Indication: Product used for unknown indication
     Route: 048
     Dates: end: 20220729
  5. Daflon [Concomitant]
     Indication: Product used for unknown indication
     Route: 048
     Dates: end: 20220729
  6. PROPOFOL LIPURO [Suspect]
     Active Substance: PROPOFOL
     Indication: Product used for unknown indication
     Route: 041
     Dates: start: 20220729, end: 20220729

REACTIONS (7)
  - Left ventricular hypertrophy [Fatal]
  - Diabetes insipidus [Fatal]
  - Cardiac arrest [Fatal]
  - Back pain [Unknown]
  - Bradycardia [Unknown]
  - Hypovolaemia [Unknown]
  - Polyuria [Unknown]

NARRATIVE: CASE EVENT DATE: 20220729
